FAERS Safety Report 7216194-9 (Version None)
Quarter: 2011Q1

REPORT INFORMATION
  Report Type: 
  Country: None (occurrence: None)
  Receive Date: 20110107
  Receipt Date: 20101227
  Transmission Date: 20110831
  Serious: Yes (Hospitalization)
  Sender: FDA-Public Use
  Company Number: US-CELGENEUS-163-21880-10122965

PATIENT
  Sex: Female
  Weight: 66.738 kg

DRUGS (15)
  1. ATENOLOL [Concomitant]
     Route: 048
  2. GLYBURIDE [Concomitant]
     Route: 048
  3. REVLIMID [Suspect]
     Route: 048
     Dates: start: 20101201
  4. ATIVAN [Concomitant]
     Route: 048
  5. DEXAMETHASONE [Concomitant]
     Route: 048
  6. LOVASTATIN [Concomitant]
     Route: 048
  7. VITAMIN B-12 [Concomitant]
     Route: 065
  8. TRIAMTERENE AND HYDROCHLOROTHIAZIDE [Concomitant]
     Dosage: 25-37.5
     Route: 048
  9. ALLOPURINOL [Concomitant]
     Route: 048
  10. REVLIMID [Suspect]
     Indication: MULTIPLE MYELOMA
     Route: 048
     Dates: start: 20090801
  11. MUPIROCIN [Concomitant]
     Route: 061
  12. ASPIRIN [Concomitant]
     Route: 048
  13. HYDROCORTISONE [Concomitant]
     Route: 061
  14. CLOPIDOGREL [Concomitant]
     Route: 048
  15. HYDRALAZINE [Concomitant]
     Route: 048

REACTIONS (4)
  - MALNUTRITION [None]
  - BLOOD COUNT ABNORMAL [None]
  - DEHYDRATION [None]
  - NASOPHARYNGITIS [None]
